FAERS Safety Report 23949819 (Version 1)
Quarter: 2024Q2

REPORT INFORMATION
  Report Type: Spontaneous
  Country: GB (occurrence: GB)
  Receive Date: 20240607
  Receipt Date: 20240607
  Transmission Date: 20240716
  Serious: Yes (Other)
  Sender: FDA-Public Use
  Company Number: GB-ETHYPHARM-2024001130

PATIENT
  Sex: Female

DRUGS (1)
  1. VENLAFAXINE [Suspect]
     Active Substance: VENLAFAXINE HYDROCHLORIDE
     Indication: Depression
     Dosage: 75 MG PROLONGED-RELEASE TABLETS
     Route: 065
     Dates: end: 202403

REACTIONS (3)
  - Disorientation [Unknown]
  - Morose [Unknown]
  - Depressed mood [Unknown]
